FAERS Safety Report 4733562-5 (Version None)
Quarter: 2005Q3

REPORT INFORMATION
  Report Type: 
  Country: None (occurrence: None)
  Receive Date: 20050729
  Receipt Date: 20050721
  Transmission Date: 20060218
  Serious: Yes (Hospitalization)
  Sender: FDA-Public Use
  Company Number: 2005RL000070

PATIENT
  Age: 79 Year
  Sex: Female

DRUGS (6)
  1. PROPAFENONE HCL [Suspect]
     Dosage: 1 DF; BID; PO
     Route: 048
     Dates: end: 20050525
  2. ISOPTIN [Concomitant]
  3. LOSARTAN [Concomitant]
  4. LEVOTHYROXINE SODIUM [Concomitant]
  5. POTASSIUM CHLORIDE [Concomitant]
  6. MEPROBAMATE [Concomitant]

REACTIONS (18)
  - AORTIC VALVE DISEASE [None]
  - ATRIAL FIBRILLATION [None]
  - ATRIOVENTRICULAR BLOCK FIRST DEGREE [None]
  - BRADYCARDIA [None]
  - BUNDLE BRANCH BLOCK LEFT [None]
  - CEREBROVASCULAR DISORDER [None]
  - CONDITION AGGRAVATED [None]
  - CONDUCTION DISORDER [None]
  - CONFUSIONAL STATE [None]
  - DEMENTIA ALZHEIMER'S TYPE [None]
  - DEPRESSED LEVEL OF CONSCIOUSNESS [None]
  - DISEASE RECURRENCE [None]
  - ELECTROCARDIOGRAM ABNORMAL [None]
  - EPILEPSY [None]
  - HYPOTENSION [None]
  - MALAISE [None]
  - MITRAL VALVE DISEASE [None]
  - SOMNOLENCE [None]
